FAERS Safety Report 7219248-6 (Version None)
Quarter: 2011Q1

REPORT INFORMATION
  Report Type: 
  Country: None (occurrence: None)
  Receive Date: 20110111
  Receipt Date: 20101229
  Transmission Date: 20110831
  Serious: No
  Sender: FDA-Public Use
  Company Number: US-PFIZER INC-2010181788

PATIENT
  Age: 45 Year
  Sex: Female

DRUGS (5)
  1. LAMOTRIGINE [Suspect]
     Dosage: UNK
  2. CELEBREX [Suspect]
     Indication: ARTHRITIS
     Dosage: UNK
  3. TRAZODONE [Suspect]
     Dosage: UNK
  4. CLOZAPINE [Suspect]
     Dosage: 100 MG, UNK
  5. LIPITOR [Suspect]
     Dosage: UNK

REACTIONS (2)
  - MEDICATION ERROR [None]
  - SOMNOLENCE [None]
